FAERS Safety Report 11913664 (Version 3)
Quarter: 2016Q1

REPORT INFORMATION
  Report Type: Spontaneous
  Country: US (occurrence: US)
  Receive Date: 20160113
  Receipt Date: 20160201
  Transmission Date: 20160526
  Serious: No
  Sender: FDA-Public Use
  Company Number: US-PFIZER INC-2015462605

PATIENT
  Age: 67 Year
  Sex: Female
  Weight: 100 kg

DRUGS (7)
  1. PREMARIN [Suspect]
     Active Substance: ESTROGENS, CONJUGATED
     Dosage: 0.625 MG, 1X/DAY, AT NIGHT TIME
     Dates: start: 201512, end: 201512
  2. ATORVASTATIN [Concomitant]
     Active Substance: ATORVASTATIN
     Indication: BLOOD CHOLESTEROL INCREASED
     Dosage: 10 MG, 1X/DAY
  3. GLUCOSAMINE WITH MSM [Concomitant]
     Indication: OSTEOPOROSIS
     Dosage: [GLUCOSAMINE 1500MG]/[METHYLSULFONYLMETHANE 1500MG] 1 TABLET ONCE A DAY
  4. PREMARIN [Suspect]
     Active Substance: ESTROGENS, CONJUGATED
     Indication: URETHRAL CARUNCLE
     Dosage: 0.625 MG, 1X/DAY, AT NIGHT TIME
     Route: 061
     Dates: start: 20151130, end: 201511
  5. PRILOSEC [Concomitant]
     Active Substance: OMEPRAZOLE MAGNESIUM
     Indication: GASTROOESOPHAGEAL REFLUX DISEASE
     Dosage: 40 MG, 1X/DAY
  6. ASPIRIN. [Concomitant]
     Active Substance: ASPIRIN
     Indication: PROPHYLAXIS
     Dosage: 81MG ONCE A DAY IN THE MORNING
  7. AMBIEN [Concomitant]
     Active Substance: ZOLPIDEM TARTRATE
     Indication: SLEEP DISORDER
     Dosage: 10MG PRN AS NEEDED

REACTIONS (4)
  - Pruritus [Recovered/Resolved]
  - Product use issue [Unknown]
  - Hypersensitivity [Recovering/Resolving]
  - Rash [Recovered/Resolved]

NARRATIVE: CASE EVENT DATE: 201511
